FAERS Safety Report 5050873-7 (Version None)
Quarter: 2006Q3

REPORT INFORMATION
  Report Type: 
  Country: None (occurrence: None)
  Receive Date: 20060710
  Receipt Date: 20060626
  Transmission Date: 20061208
  Serious: Yes (Hospitalization)
  Sender: FDA-Public Use
  Company Number: 2006080337

PATIENT
  Age: 79 Year
  Sex: Female
  Weight: 74 kg

DRUGS (3)
  1. SUTENT [Suspect]
     Indication: METASTATIC RENAL CELL CARCINOMA
     Dosage: 50  MG (50 MG, QD - INTERVAL:  EVERY DAY), ORAL
     Route: 048
     Dates: start: 20060520
  2. EFFOX LONG (ISOSORBIDE MONONITRATE) [Concomitant]
  3. MOLSIDOMINE (MOLSIDOMINE) [Concomitant]

REACTIONS (1)
  - HYPOTONIA [None]
